FAERS Safety Report 5619766-8 (Version None)
Quarter: 2008Q1

REPORT INFORMATION
  Report Type: 
  Country: None (occurrence: None)
  Receive Date: 20080208
  Receipt Date: 20080204
  Transmission Date: 20080703
  Serious: Yes (Other)
  Sender: FDA-Public Use
  Company Number: US-JNJFOC-20080200869

PATIENT
  Sex: Female

DRUGS (1)
  1. CHILDRENS TYLENOL PLUS FLU BUBBLEGUM [Suspect]
     Indication: INFLUENZA
     Dosage: DOSE AND FREQUENCY UNKNOWN, TWICE
     Route: 048

REACTIONS (1)
  - HALLUCINATION [None]
